FAERS Safety Report 9885131 (Version 1)
Quarter: 2014Q1

REPORT INFORMATION
  Report Type: Spontaneous
  Country: US (occurrence: None)
  Receive Date: 20140205
  Receipt Date: 20140205
  Transmission Date: 20141002
  Serious: Yes (Death)
  Sender: FDA-Public Use
  Company Number: IMP_07088_2014

PATIENT
  Age: 54 Year
  Sex: Female

DRUGS (6)
  1. METFORMIN [Suspect]
     Indication: PRODUCT USED FOR UNKNOWN INDICATION
     Dosage: (DF ORAL) UNKNOWN UNTIL NOT CONTINUING?
  2. GEMFIBROZIL [Suspect]
     Indication: PRODUCT USED FOR UNKNOWN INDICATION
     Dosage: (DF ORAL) UNKNOWN UNTIL NOT CONTINUING??
  3. ATENOLOL [Suspect]
     Indication: PRODUCT USED FOR UNKNOWN INDICATION
     Dosage: (DF ORAL) UNKNOWN UNTIL NOT CONTINUING??
  4. FENTANYL [Suspect]
     Indication: PRODUCT USED FOR UNKNOWN INDICATION
     Dosage: (DF ORAL) UNKNOWN UNTIL NOT CONTINUING??
  5. FLUOXETINE W/OLANZAPINE [Suspect]
     Indication: PRODUCT USED FOR UNKNOWN INDICATION
     Dosage: (DF ORAL) UNKNOWN UNTIL NOT CONTINUING??
  6. GLIPIZIDE [Suspect]
     Indication: PRODUCT USED FOR UNKNOWN INDICATION
     Dosage: (DF ORAL) UNKNOWN UNTIL NOT CONTINUING??

REACTIONS (1)
  - Completed suicide [None]
